FAERS Safety Report 25451621 (Version 1)
Quarter: 2025Q2

REPORT INFORMATION
  Report Type: Spontaneous
  Country: FR (occurrence: FR)
  Receive Date: 20250618
  Receipt Date: 20250618
  Transmission Date: 20250716
  Serious: Yes (Death)
  Sender: PFIZER
  Company Number: None

PATIENT
  Age: 72 Year
  Sex: Female
  Weight: 84 kg

DRUGS (4)
  1. PACLITAXEL [Suspect]
     Active Substance: PACLITAXEL
     Indication: Endometrial cancer
     Route: 042
     Dates: start: 20250505, end: 20250505
  2. PACLITAXEL [Suspect]
     Active Substance: PACLITAXEL
     Route: 042
     Dates: start: 20250526, end: 20250526
  3. CARBOPLATIN [Suspect]
     Active Substance: CARBOPLATIN
     Indication: Endometrial cancer
     Route: 042
     Dates: start: 20250505, end: 20250505
  4. CARBOPLATIN [Suspect]
     Active Substance: CARBOPLATIN
     Route: 042
     Dates: start: 20250526, end: 20250526

REACTIONS (4)
  - Cardio-respiratory arrest [Fatal]
  - Nausea [Fatal]
  - Dyspnoea [Fatal]
  - Hypoxia [Fatal]

NARRATIVE: CASE EVENT DATE: 20250526
